FAERS Safety Report 8966708 (Version 4)
Quarter: 2013Q1

REPORT INFORMATION
  Report Type: Spontaneous
  Country: JP (occurrence: JP)
  Receive Date: 20121217
  Receipt Date: 20130301
  Transmission Date: 20140127
  Serious: Yes (Other)
  Sender: FDA-Public Use
  Company Number: JP-JNJFOC-20121205891

PATIENT
  Age: 56 None
  Sex: Female
  Weight: 85 kg

DRUGS (4)
  1. REMICADE [Suspect]
     Indication: COLITIS ULCERATIVE
     Route: 042
     Dates: start: 20100807
  2. REMICADE [Suspect]
     Indication: COLITIS ULCERATIVE
     Route: 042
     Dates: start: 20110115
  3. REMICADE [Suspect]
     Indication: COLITIS ULCERATIVE
     Dosage: 6TH DOSE
     Route: 042
     Dates: start: 20110312
  4. REMICADE [Suspect]
     Indication: COLITIS ULCERATIVE
     Dosage: 7TH DOSE
     Route: 042
     Dates: start: 20110518, end: 2011

REACTIONS (3)
  - Dermatitis psoriasiform [Recovered/Resolved]
  - Pyoderma gangrenosum [Recovered/Resolved]
  - Pustular psoriasis [Recovered/Resolved]
